FAERS Safety Report 13088404 (Version 1)
Quarter: 2017Q1

REPORT INFORMATION
  Report Type: Spontaneous
  Country: FR (occurrence: FR)
  Receive Date: 20170105
  Receipt Date: 20170105
  Transmission Date: 20170428
  Serious: Yes (Hospitalization)
  Sender: FDA-Public Use
  Company Number: FR-PFIZER INC-2016601945

PATIENT
  Age: 70 Year
  Sex: Male

DRUGS (6)
  1. KARDEGIC [Concomitant]
     Active Substance: ASPIRIN LYSINE
  2. COVERAM [Concomitant]
     Active Substance: AMLODIPINE\PERINDOPRIL
  3. GAVISCON [Concomitant]
     Active Substance: ALUMINUM HYDROXIDE\MAGNESIUM CARBONATE
     Dosage: UNK
     Dates: start: 20161103
  4. INEXIUM [Suspect]
     Active Substance: ESOMEPRAZOLE
     Indication: GASTROOESOPHAGEAL REFLUX DISEASE
     Dosage: 40 MG, 1X/DAY
     Route: 048
     Dates: start: 20161020, end: 20161116
  5. TAHOR [Suspect]
     Active Substance: ATORVASTATIN CALCIUM
     Indication: DYSLIPIDAEMIA
     Dosage: 40 MG, 1X/DAY
     Route: 048
     Dates: start: 20161020, end: 20161109
  6. LANSOPRAZOL [Concomitant]
     Active Substance: LANSOPRAZOLE

REACTIONS (2)
  - Hepatitis [Unknown]
  - Cerebellar infarction [Unknown]

NARRATIVE: CASE EVENT DATE: 20161109
